FAERS Safety Report 7535703-3 (Version None)
Quarter: 2011Q2

REPORT INFORMATION
  Report Type: 
  Country: None (occurrence: None)
  Receive Date: 20110609
  Receipt Date: 20110530
  Transmission Date: 20111010
  Serious: Yes (Hospitalization)
  Sender: FDA-Public Use
  Company Number: TR-KINGPHARMUSA00001-K201100686

PATIENT
  Age: 14 Year
  Sex: Male

DRUGS (6)
  1. CASPOFUNGIN ACETATE [Concomitant]
  2. NETILMICIN [Concomitant]
  3. CYCLOPHOSPHAMIDE [Suspect]
     Indication: T-CELL TYPE ACUTE LEUKAEMIA
     Dosage: UNK, 7 DAYS ON/2 WEEKS OFF
  4. SEPTRA [Suspect]
     Indication: PNEUMONIA
     Dosage: UNK
     Route: 048
  5. DEXAMETHASONE [Suspect]
     Indication: T-CELL TYPE ACUTE LEUKAEMIA
     Dosage: UNK, 7 DAYS ON/2 WEEKS OFF
  6. LINEZOLID [Concomitant]

REACTIONS (8)
  - SLEEP DISORDER [None]
  - PRESSURE OF SPEECH [None]
  - MANIA [None]
  - FLIGHT OF IDEAS [None]
  - LOGORRHOEA [None]
  - ELEVATED MOOD [None]
  - IRRITABILITY [None]
  - DELUSION OF GRANDEUR [None]
